FAERS Safety Report 9049018 (Version 1)
Quarter: 2013Q1

REPORT INFORMATION
  Report Type: Spontaneous
  Country: US (occurrence: None)
  Receive Date: 20130129
  Receipt Date: 20130129
  Transmission Date: 20140127
  Serious: Yes (Other)
  Sender: FDA-Public Use
  Company Number: None

PATIENT
  Age: 53 Year
  Sex: 0
  Weight: 72.12 kg

DRUGS (5)
  1. ZOLOFT - GENERIC [Suspect]
     Indication: ANXIETY
  2. ZOLOFT - GENERIC [Suspect]
     Indication: DEPRESSION
  3. WELBUTRIN [Concomitant]
  4. CLONAZEPAM [Concomitant]
  5. BUSPAR [Concomitant]

REACTIONS (2)
  - Feeling abnormal [None]
  - Product substitution issue [None]
